FAERS Safety Report 24203919 (Version 2)
Quarter: 2024Q3

REPORT INFORMATION
  Report Type: Spontaneous
  Country: NL (occurrence: NL)
  Receive Date: 20240813
  Receipt Date: 20240826
  Transmission Date: 20241016
  Serious: Yes (Death)
  Sender: TEVA
  Company Number: NL-TEVA-VS-3231774

PATIENT
  Age: 34 Month
  Sex: Female

DRUGS (4)
  1. MYCOPHENOLATE MOFETIL [Suspect]
     Active Substance: MYCOPHENOLATE MOFETIL
     Indication: Demyelinating polyneuropathy
     Route: 065
  2. PREDNISONE [Concomitant]
     Active Substance: PREDNISONE
     Indication: Demyelinating polyneuropathy
  3. CYCLOSPORINE [Concomitant]
     Active Substance: CYCLOSPORINE
     Indication: Demyelinating polyneuropathy
     Dosage: 200 MG/L
  4. IMMUNE GLOBULIN NOS [Suspect]
     Active Substance: IMMUNE GLOBULIN NOS
     Indication: Demyelinating polyneuropathy
     Route: 042

REACTIONS (1)
  - Drug ineffective [Fatal]
